FAERS Safety Report 7479486-4 (Version None)
Quarter: 2011Q2

REPORT INFORMATION
  Report Type: 
  Country: None (occurrence: None)
  Receive Date: 20110504
  Receipt Date: 20110420
  Transmission Date: 20111010
  Serious: Yes (Hospitalization, Other)
  Sender: FDA-Public Use
  Company Number: 031488

PATIENT

DRUGS (1)
  1. CIMZIA [Suspect]
     Dosage: 400 MG 1X/4 WEEK SUBCUTANEOUS
     Route: 058
     Dates: start: 20101021

REACTIONS (2)
  - INTESTINAL CYST [None]
  - INFECTED CYST [None]
